FAERS Safety Report 7611974-X (Version None)
Quarter: 2011Q3

REPORT INFORMATION
  Report Type: 
  Country: None (occurrence: None)
  Receive Date: 20110715
  Receipt Date: 20110705
  Transmission Date: 20111222
  Serious: Yes (Hospitalization)
  Sender: FDA-Public Use
  Company Number: JP-ASTRAZENECA-2011SE41769

PATIENT
  Sex: Male

DRUGS (2)
  1. MEROPENEM [Suspect]
     Indication: SEPSIS
     Route: 042
  2. VANCOMYCIN PREPARATIONS [Concomitant]

REACTIONS (1)
  - INTERSTITIAL LUNG DISEASE [None]
